FAERS Safety Report 15510268 (Version 1)
Quarter: 2018Q4

REPORT INFORMATION
  Report Type: Spontaneous
  Country: US (occurrence: US)
  Receive Date: 20181017
  Receipt Date: 20181017
  Transmission Date: 20190205
  Serious: Yes (Hospitalization, Other)
  Sender: FDA-Public Use
  Company Number: None

PATIENT
  Age: 70 Year
  Sex: Female

DRUGS (2)
  1. HUMIRA [Suspect]
     Active Substance: ADALIMUMAB
     Indication: RHEUMATOID ARTHRITIS
     Dosage: ?          OTHER FREQUENCY:Q14 DAYS;?
     Route: 058
     Dates: start: 20170330
  2. MOBIC [Concomitant]
     Active Substance: MELOXICAM

REACTIONS (3)
  - Product dose omission [None]
  - Surgery [None]
  - Arthralgia [None]

NARRATIVE: CASE EVENT DATE: 20180720
